FAERS Safety Report 8956152 (Version 1)
Quarter: 2012Q4

REPORT INFORMATION
  Report Type: 
  Country: US (occurrence: US)
  Receive Date: 20121210
  Receipt Date: 20121210
  Transmission Date: 20130627
  Serious: Yes (Hospitalization)
  Sender: FDA-Public Use
  Company Number: US-JNJFOC-20121201576

PATIENT
  Sex: Female
  Weight: 85.9 kg

DRUGS (2)
  1. RIVAROXABAN [Suspect]
     Indication: THROMBOSIS PROPHYLAXIS
     Route: 048
     Dates: start: 20120711, end: 20120712
  2. RIVAROXABAN [Suspect]
     Indication: KNEE ARTHROPLASTY
     Route: 048
     Dates: start: 20120711, end: 20120712

REACTIONS (1)
  - Pulmonary embolism [Unknown]
